FAERS Safety Report 5794673-9 (Version None)
Quarter: 2008Q2

REPORT INFORMATION
  Report Type: 
  Country: None (occurrence: None)
  Receive Date: 20080626
  Receipt Date: 20080613
  Transmission Date: 20081010
  Serious: Yes (Life-Threatening)
  Sender: FDA-Public Use
  Company Number: GXKR2008PL04958

PATIENT
  Age: 88 Year
  Sex: Male

DRUGS (4)
  1. DIGOXIN [Suspect]
  2. POTASSIUM (POTASSIUM) [Suspect]
  3. ACE INHIBITOR NOS (NO INGREDIENTS/SUBSTANCES) [Suspect]
  4. NSAID'S (NO INGREDIENTS/SUBSTANCES) [Suspect]

REACTIONS (3)
  - CARDIAC DISORDER [None]
  - GASTROINTESTINAL DISORDER [None]
  - HYPERKALAEMIA [None]
